FAERS Safety Report 17316686 (Version 1)
Quarter: 2020Q1

REPORT INFORMATION
  Report Type: Report from Study
  Country: MX (occurrence: MX)
  Receive Date: 20200124
  Receipt Date: 20200124
  Transmission Date: 20200409
  Serious: Yes (Other)
  Sender: FDA-Public Use
  Company Number: PHHY2019MX135506

PATIENT
  Age: 71 Year
  Sex: Female
  Weight: 74 kg

DRUGS (6)
  1. ASPIRIN PROTECT [Concomitant]
     Active Substance: ASPIRIN
     Indication: PROPHYLAXIS
     Dosage: 1 DF, QD
     Route: 048
  2. LOPRESOR [Suspect]
     Active Substance: METOPROLOL
     Indication: BLOOD PRESSURE INCREASED
     Dosage: 0.5 DF (95 MG), BID
     Route: 048
  3. ISOSORBIDE MONONITRATE. [Concomitant]
     Active Substance: ISOSORBIDE MONONITRATE
     Indication: PRODUCT USED FOR UNKNOWN INDICATION
     Dosage: 20 MG, QD
     Route: 048
  4. EXFORGE [Suspect]
     Active Substance: AMLODIPINE BESYLATE\VALSARTAN
     Dosage: 0.5 DF, BID (MORNING AND NIGHT)
     Route: 048
  5. LEVOTHYROXINE SODIUM. [Concomitant]
     Active Substance: LEVOTHYROXINE SODIUM
     Indication: HYPOTHYROIDISM
     Dosage: 100 MG
     Route: 048
  6. EXFORGE [Suspect]
     Active Substance: AMLODIPINE BESYLATE\VALSARTAN
     Indication: HYPERTENSION
     Dosage: 1 DF (AMLODIPINE 5 MG, VALSARTAN 160 MG), BID
     Route: 048

REACTIONS (22)
  - Infarction [Recovered/Resolved]
  - Body temperature abnormal [Unknown]
  - Inappropriate schedule of product administration [Unknown]
  - Aortic aneurysm [Unknown]
  - Blood pressure increased [Unknown]
  - Blood cholesterol increased [Unknown]
  - Chills [Unknown]
  - Retinal injury [Unknown]
  - Blood triglycerides increased [Unknown]
  - Retinal degeneration [Unknown]
  - Infection [Recovered/Resolved]
  - Blood pressure decreased [Unknown]
  - Diarrhoea [Unknown]
  - Dehydration [Unknown]
  - Wrong technique in product usage process [Unknown]
  - Feeling abnormal [Unknown]
  - Product prescribing error [Unknown]
  - Drug ineffective [Unknown]
  - Cataract [Unknown]
  - Blindness [Unknown]
  - Implant site haemorrhage [Unknown]
  - Weight decreased [Unknown]

NARRATIVE: CASE EVENT DATE: 20200115
